FAERS Safety Report 10018253 (Version 1)
Quarter: 2014Q1

REPORT INFORMATION
  Report Type: Spontaneous
  Country: US (occurrence: US)
  Receive Date: 20140318
  Receipt Date: 20140318
  Transmission Date: 20141002
  Serious: No
  Sender: FDA-Public Use
  Company Number: US-BRISTOL-MYERS SQUIBB COMPANY-19646934

PATIENT
  Age: 83 Year
  Sex: Male
  Weight: 113.38 kg

DRUGS (8)
  1. ERBITUX [Suspect]
  2. ZETIA [Concomitant]
  3. AVODART [Concomitant]
  4. JANUVIA [Concomitant]
  5. TERAZOSIN [Concomitant]
  6. GLIMEPIRIDE [Concomitant]
  7. PREDNISONE [Concomitant]
  8. LOSARTAN [Concomitant]

REACTIONS (4)
  - Rash [Unknown]
  - Ageusia [Unknown]
  - Stomatitis [Unknown]
  - Dysphagia [Unknown]
